FAERS Safety Report 13564880 (Version 4)
Quarter: 2017Q3

REPORT INFORMATION
  Report Type: Spontaneous
  Country: US (occurrence: US)
  Receive Date: 20170519
  Receipt Date: 20170803
  Transmission Date: 20171127
  Serious: Yes (Hospitalization, Other)
  Sender: FDA-Public Use
  Company Number: US-UNITED THERAPEUTICS-UNT-2017-006915

PATIENT
  Age: 63 Year
  Sex: Female
  Weight: 75.28 kg

DRUGS (3)
  1. LETAIRIS [Concomitant]
     Active Substance: AMBRISENTAN
     Indication: PRODUCT USED FOR UNKNOWN INDICATION
  2. REMODULIN [Suspect]
     Active Substance: TREPROSTINIL
     Indication: PULMONARY ARTERIAL HYPERTENSION
     Dosage: 0.020 ?G/KG, CONTINUING
     Route: 058
     Dates: start: 20161003
  3. REVATIO [Concomitant]
     Active Substance: SILDENAFIL CITRATE
     Indication: PRODUCT USED FOR UNKNOWN INDICATION

REACTIONS (11)
  - Nasal congestion [Unknown]
  - Oxygen saturation decreased [Unknown]
  - Headache [Unknown]
  - Heart rate increased [Unknown]
  - Infusion site infection [Recovered/Resolved]
  - Dyspnoea [Unknown]
  - Infusion site erythema [Unknown]
  - Cough [Unknown]
  - Intracardiac mass [Unknown]
  - Infusion site pain [Unknown]
  - Sinus disorder [Unknown]

NARRATIVE: CASE EVENT DATE: 201705
